FAERS Safety Report 23527517 (Version 4)
Quarter: 2024Q4

REPORT INFORMATION
  Report Type: Spontaneous
  Country: CA (occurrence: CA)
  Receive Date: 20240215
  Receipt Date: 20241010
  Transmission Date: 20250115
  Serious: Yes (Other)
  Sender: VERTEX
  Company Number: US-VERTEX PHARMACEUTICALS-2024-002241

PATIENT
  Age: 32 Year

DRUGS (2)
  1. TRIKAFTA [Suspect]
     Active Substance: ELEXACAFTOR\IVACAFTOR\TEZACAFTOR
     Indication: Cystic fibrosis
     Dosage: ORANGE AND BLUE PILL
     Route: 048
  2. TRIKAFTA [Suspect]
     Active Substance: ELEXACAFTOR\IVACAFTOR\TEZACAFTOR
     Dosage: ONLY ORANGE AND NO BLUE PILL
     Route: 048

REACTIONS (11)
  - Intestinal operation [Unknown]
  - Anxiety [Unknown]
  - Paranoia [Unknown]
  - Hallucination, auditory [Unknown]
  - Melanocytic naevus [Unknown]
  - Memory impairment [Unknown]
  - Liver disorder [Not Recovered/Not Resolved]
  - Fear [Unknown]
  - Thinking abnormal [Unknown]
  - Depersonalisation/derealisation disorder [Unknown]
  - Insomnia [Unknown]
